FAERS Safety Report 5647031-1 (Version None)
Quarter: 2008Q1

REPORT INFORMATION
  Report Type: 
  Country: None (occurrence: None)
  Receive Date: 20080131
  Receipt Date: 20071105
  Transmission Date: 20080703
  Serious: Yes (Death, Other)
  Sender: FDA-Public Use
  Company Number: 163-21880-07100784

PATIENT
  Age: 49 Year
  Sex: Female

DRUGS (3)
  1. REVLIMID [Suspect]
     Indication: MULTIPLE MYELOMA
     Dosage: 15 MG, X21 DAYS EVERY 28 DAYS, ORAL ; 15 MG, X21 DAYS EVERY 28 DAYS, ORAL
     Route: 048
     Dates: start: 20070817, end: 20071007
  2. REVLIMID [Suspect]
     Indication: SARCOIDOSIS
     Dosage: 15 MG, X21 DAYS EVERY 28 DAYS, ORAL ; 15 MG, X21 DAYS EVERY 28 DAYS, ORAL
     Route: 048
     Dates: start: 20070817, end: 20071007
  3. OXYGEN (OXYGEN) [Concomitant]

REACTIONS (2)
  - ARRHYTHMIA [None]
  - PULMONARY EMBOLISM [None]
